FAERS Safety Report 4899414-5 (Version None)
Quarter: 2006Q1

REPORT INFORMATION
  Report Type: 
  Country: None (occurrence: None)
  Receive Date: 20060118
  Receipt Date: 20051007
  Transmission Date: 20060701
  Serious: No
  Sender: FDA-Public Use
  Company Number: 2005001974

PATIENT
  Age: 83 Year
  Sex: Male
  Weight: 77.1115 kg

DRUGS (4)
  1. TARCEVA [Suspect]
     Indication: NON-SMALL CELL LUNG CANCER
     Dosage: 150 MG (QD), ORAL
     Route: 048
  2. THYROID PILLS [Concomitant]
  3. LOTION [Concomitant]
  4. BLOOD PRESSURE PILLS [Concomitant]

REACTIONS (2)
  - DYSPHONIA [None]
  - RASH [None]
